FAERS Safety Report 8719279 (Version 3)
Quarter: 2012Q4

REPORT INFORMATION
  Report Type: Report from Study
  Country: JP (occurrence: JP)
  Receive Date: 20120813
  Receipt Date: 20121023
  Transmission Date: 20130627
  Serious: No
  Sender: FDA-Public Use
  Company Number: JP-MSD-2012SP036331

PATIENT

DRUGS (12)
  1. PEGINTERFERON ALFA-2B [Suspect]
     Indication: HEPATITIS C
     Dosage: 1.5 Microgram per kilogram, qw
     Route: 058
     Dates: start: 20120417, end: 20120626
  2. PEGINTERFERON ALFA-2B [Suspect]
     Dosage: 1.2 Microgram per kilogram, UNK
     Route: 058
     Dates: start: 20120627, end: 20120710
  3. PEGINTERFERON ALFA-2B [Suspect]
     Dosage: 1.5 Microgram per kilogram, UNK
     Route: 058
     Dates: start: 20120711
  4. REBETOL [Suspect]
     Indication: HEPATITIS C
     Dosage: 600 mg, QD
     Route: 048
     Dates: start: 20120417, end: 20120612
  5. REBETOL [Suspect]
     Dosage: 400 mg, qd
     Route: 048
     Dates: start: 20120613, end: 20120619
  6. REBETOL [Suspect]
     Dosage: 200 mg, qd
     Route: 048
     Dates: start: 20120711
  7. TELAVIC [Suspect]
     Indication: HEPATITIS C
     Dosage: 1500 mg, QD,Cumulative dose 3000 mg
     Route: 048
     Dates: start: 20120417, end: 20120423
  8. TELAVIC [Suspect]
     Dosage: 2250 mg, QD,Cumulative dose 3000 mg
     Route: 048
     Dates: start: 20120424, end: 20120626
  9. TELAVIC [Suspect]
     Dosage: 1500 mg, qd, Cumulative dose 3000 mg
     Route: 048
     Dates: start: 20120627, end: 20120703
  10. TELAVIC [Suspect]
     Dosage: 750 mg, qd, Cumulative dose 3000 mg
     Route: 048
     Dates: start: 20120704, end: 20120710
  11. BASEN [Concomitant]
     Indication: DIABETES MELLITUS
     Dosage: 0.9 mg, qd
     Route: 048
  12. ALLOPURINOL [Concomitant]
     Indication: PROPHYLAXIS
     Dosage: 60 mg, QD
     Route: 048

REACTIONS (1)
  - Blood uric acid increased [Recovered/Resolved]
